FAERS Safety Report 24798863 (Version 1)
Quarter: 2025Q1

REPORT INFORMATION
  Report Type: Spontaneous
  Country: IN (occurrence: IN)
  Receive Date: 20250102
  Receipt Date: 20250102
  Transmission Date: 20250409
  Serious: Yes (Hospitalization, Other)
  Sender: JUBILANT
  Company Number: IN-JUBILANT CADISTA PHARMACEUTICALS-2024IN001908

PATIENT
  Age: 22 Year
  Sex: Male

DRUGS (2)
  1. PANTOPRAZOLE SODIUM [Suspect]
     Active Substance: PANTOPRAZOLE SODIUM
     Indication: Dyspepsia
  2. ACETAMINOPHEN [Concomitant]
     Active Substance: ACETAMINOPHEN
     Indication: Pain

REACTIONS (3)
  - Tubulointerstitial nephritis [Recovered/Resolved]
  - Oliguria [Recovered/Resolved]
  - Back pain [Recovered/Resolved]
